FAERS Safety Report 4279753-1 (Version None)
Quarter: 2004Q1

REPORT INFORMATION
  Report Type: 
  Country: None (occurrence: None)
  Receive Date: 20040123
  Receipt Date: 20040112
  Transmission Date: 20041129
  Serious: Yes (Death, Hospitalization, Disabling, Other)
  Sender: FDA-Public Use
  Company Number: 2003040559

PATIENT
  Age: 90 Year
  Sex: Female
  Weight: 80 kg

DRUGS (6)
  1. ZOLOFT [Suspect]
     Indication: DEPRESSION
     Dosage: 200 MG DAILY ORAL
     Route: 048
     Dates: start: 20030801, end: 20030906
  2. HYZAAR [Suspect]
     Indication: HYPERTENSION
     Dosage: DAILY ORAL
     Route: 048
     Dates: end: 20030906
  3. DILTIAZEM HYDROCHLORIDE [Suspect]
     Indication: HYPERTENSION
     Dosage: DAILY, ORAL
     Route: 048
     Dates: end: 20030906
  4. TRAMADOL/ACETAMINOPHEN (TRAMADOL) [Suspect]
     Indication: OSTEOARTHRITIS
     Dosage: TID , ORAL
     Route: 048
     Dates: end: 20030906
  5. URAPIDIL [Concomitant]
  6. LACTITOL [Concomitant]

REACTIONS (12)
  - AMNESIA [None]
  - ARTERIAL INJURY [None]
  - ATRIAL FIBRILLATION [None]
  - CARDIAC FAILURE [None]
  - DEPRESSED LEVEL OF CONSCIOUSNESS [None]
  - DISORIENTATION [None]
  - DRUG INTERACTION [None]
  - HYPONATRAEMIA [None]
  - ISCHAEMIC STROKE [None]
  - LEG AMPUTATION [None]
  - SPEECH DISORDER [None]
  - TRANSIENT ISCHAEMIC ATTACK [None]
